FAERS Safety Report 10553257 (Version 2)
Quarter: 2014Q4

REPORT INFORMATION
  Report Type: Spontaneous
  Country: US (occurrence: US)
  Receive Date: 20141030
  Receipt Date: 20141107
  Transmission Date: 20150529
  Serious: Yes (Death)
  Sender: FDA-Public Use
  Company Number: US-UNITED THERAPEUTICS-UNT-2014-007345

PATIENT
  Age: 24 Year
  Sex: Female
  Weight: 55.33 kg

DRUGS (1)
  1. REMODULIN [Suspect]
     Active Substance: TREPROSTINIL
     Indication: COR PULMONALE CHRONIC
     Dosage: 0.100 ?G/KG, CONTINUING
     Route: 058
     Dates: start: 20130819

REACTIONS (1)
  - Systemic lupus erythematosus [Fatal]

NARRATIVE: CASE EVENT DATE: 20140828
